FAERS Safety Report 6824049-4 (Version None)
Quarter: 2010Q3

REPORT INFORMATION
  Report Type: 
  Country: None (occurrence: None)
  Receive Date: 20100708
  Receipt Date: 20070212
  Transmission Date: 20110219
  Serious: No
  Sender: FDA-Public Use
  Company Number: US-PFIZER INC-2006110587

PATIENT
  Sex: Female
  Weight: 72.57 kg

DRUGS (5)
  1. CHANTIX [Suspect]
     Indication: SMOKING CESSATION THERAPY
     Dates: start: 20060801, end: 20060101
  2. CELEBREX [Concomitant]
  3. PROVENTIL GENTLEHALER [Concomitant]
  4. ADVAIR DISKUS 100/50 [Concomitant]
  5. DUONEB [Concomitant]

REACTIONS (1)
  - DRUG INEFFECTIVE [None]
